FAERS Safety Report 5140996-6 (Version None)
Quarter: 2006Q4

REPORT INFORMATION
  Report Type: 
  Country: None (occurrence: None)
  Receive Date: 20061025
  Receipt Date: 20061023
  Transmission Date: 20070319
  Serious: Yes (Hospitalization)
  Sender: FDA-Public Use
  Company Number: 146986USA

PATIENT
  Age: 62 Year
  Sex: Female

DRUGS (1)
  1. COPAXONE [Suspect]
     Indication: MULTIPLE SCLEROSIS
     Dosage: 20 MG (20 MG, ONCE A DAY), SUBCUTANEOUS
     Route: 058
     Dates: start: 19930101, end: 20050901

REACTIONS (2)
  - CARDIAC VALVE DISEASE [None]
  - DYSPNOEA [None]
